FAERS Safety Report 8390257-7 (Version None)
Quarter: 2012Q2

REPORT INFORMATION
  Report Type: 
  Country: None (occurrence: None)
  Receive Date: 20120529
  Receipt Date: 20120522
  Transmission Date: 20120825
  Serious: Yes (Other)
  Sender: FDA-Public Use
  Company Number: US-PFIZER INC-2012124812

PATIENT
  Sex: Female

DRUGS (1)
  1. ZOLOFT [Suspect]
     Dosage: UNK
     Dates: start: 20120301

REACTIONS (6)
  - MOOD SWINGS [None]
  - AGORAPHOBIA [None]
  - TEARFULNESS [None]
  - DEPRESSION [None]
  - ANXIETY [None]
  - PARANOIA [None]
